FAERS Safety Report 9896897 (Version 1)
Quarter: 2014Q1

REPORT INFORMATION
  Report Type: Report from Study
  Country: US (occurrence: US)
  Receive Date: 20140214
  Receipt Date: 20140214
  Transmission Date: 20141002
  Serious: Yes (Hospitalization, Other)
  Sender: FDA-Public Use
  Company Number: US-ROCHE-1329782

PATIENT
  Sex: Female

DRUGS (4)
  1. AVASTIN [Suspect]
     Indication: BREAST CANCER
     Route: 065
  2. ABRAXANE [Concomitant]
  3. TAXOTERE [Concomitant]
     Route: 065
  4. LEXAPRO [Concomitant]
     Dosage: TITRATE AS TOLERATED
     Route: 065

REACTIONS (8)
  - Drug intolerance [Unknown]
  - Breast cancer recurrent [Unknown]
  - Depression [Unknown]
  - Insomnia [Unknown]
  - Anxiety [Unknown]
  - Asthenia [Unknown]
  - Feeling of despair [Unknown]
  - Feeling of despair [Unknown]
